FAERS Safety Report 11225636 (Version 1)
Quarter: 2015Q2

REPORT INFORMATION
  Report Type: Spontaneous
  Country: US (occurrence: None)
  Receive Date: 20150626
  Receipt Date: 20150626
  Transmission Date: 20150821
  Serious: Yes (Other)
  Sender: FDA-Public Use
  Company Number: None

PATIENT
  Age: 63 Year
  Sex: Female
  Weight: 83.92 kg

DRUGS (9)
  1. ATENOLOL. [Concomitant]
     Active Substance: ATENOLOL
  2. ZOLPIDEM [Concomitant]
     Active Substance: ZOLPIDEM\ZOLPIDEM TARTRATE
  3. ADDERALL [Concomitant]
     Active Substance: AMPHETAMINE ASPARTATE\AMPHETAMINE SULFATE\DEXTROAMPHETAMINE SACCHARATE\DEXTROAMPHETAMINE SULFATE
  4. GABAPENTIN. [Concomitant]
     Active Substance: GABAPENTIN
  5. OLIVE LEAF EXTRACT [Concomitant]
  6. LEVOFLOXACIN. [Suspect]
     Active Substance: LEVOFLOXACIN
  7. CIPROFLOXACIN 250MG TAB BAY [Suspect]
     Active Substance: CIPROFLOXACIN
     Indication: SINUSITIS
     Route: 048
     Dates: start: 20140526, end: 20150604
  8. CIPROFLOXACIN 250MG TAB BAY [Suspect]
     Active Substance: CIPROFLOXACIN
     Indication: DIVERTICULITIS
     Route: 048
     Dates: start: 20140526, end: 20150604
  9. TENS UNIT [Concomitant]

REACTIONS (10)
  - Influenza [None]
  - Diverticulitis [None]
  - Tendon disorder [None]
  - Gait disturbance [None]
  - Tendon rupture [None]
  - Activities of daily living impaired [None]
  - Pain [None]
  - Multiple injuries [None]
  - Joint dislocation [None]
  - Nasopharyngitis [None]

NARRATIVE: CASE EVENT DATE: 20141102
